FAERS Safety Report 4783267-X (Version None)
Quarter: 2005Q3

REPORT INFORMATION
  Report Type: 
  Country: None (occurrence: None)
  Receive Date: 20050929
  Receipt Date: 20050718
  Transmission Date: 20060218
  Serious: Yes (Hospitalization)
  Sender: FDA-Public Use
  Company Number: US-MERCK-0507USA02941

PATIENT
  Age: 72 Year
  Sex: Female
  Weight: 84 kg

DRUGS (13)
  1. VIOXX [Suspect]
     Indication: MONARTHRITIS
     Route: 048
     Dates: start: 20000804
  2. NORTRIPTYLINE [Concomitant]
     Route: 065
  3. AMBIEN [Concomitant]
     Route: 065
  4. LASIX [Concomitant]
     Route: 065
  5. GLUCOTROL [Concomitant]
     Route: 065
  6. LISINOPRIL [Concomitant]
     Route: 065
  7. TRIAMTERENE [Concomitant]
     Route: 065
  8. ALBUTEROL [Concomitant]
     Route: 065
  9. DIGITEK [Concomitant]
     Route: 065
  10. OXYGEN [Concomitant]
     Route: 065
  11. PLAVIX [Concomitant]
     Route: 065
  12. KLOR-CON [Concomitant]
     Route: 065
  13. AMIODARONE [Concomitant]
     Route: 065

REACTIONS (5)
  - ANEURYSM [None]
  - CARDIAC FAILURE CONGESTIVE [None]
  - LOSS OF CONSCIOUSNESS [None]
  - MYOCARDIAL INFARCTION [None]
  - PERIPHERAL VASCULAR DISORDER [None]
